FAERS Safety Report 6443652-7 (Version None)
Quarter: 2009Q4

REPORT INFORMATION
  Report Type: 
  Country: None (occurrence: None)
  Receive Date: 20091117
  Receipt Date: 20091104
  Transmission Date: 20100525
  Serious: Yes (Hospitalization)
  Sender: FDA-Public Use
  Company Number: PHHY2009GB48629

PATIENT
  Sex: Male

DRUGS (3)
  1. CLOZARIL [Suspect]
     Indication: SCHIZOPHRENIA
     Dosage: UNK
     Route: 048
     Dates: start: 20080704
  2. CLOZARIL [Suspect]
     Dosage: 41 X 100MG
  3. QUETIAPINE [Suspect]

REACTIONS (2)
  - OVERDOSE [None]
  - SOMNOLENCE [None]
